FAERS Safety Report 11447767 (Version 1)
Quarter: 2015Q3

REPORT INFORMATION
  Report Type: Spontaneous
  Country: US (occurrence: US)
  Receive Date: 20150831
  Receipt Date: 20150831
  Transmission Date: 20151125
  Serious: No
  Sender: FDA-Public Use
  Company Number: US-ELI_LILLY_AND_COMPANY-US200904002025

PATIENT
  Age: 31 Year
  Sex: Female

DRUGS (4)
  1. CYMBALTA [Suspect]
     Active Substance: DULOXETINE HYDROCHLORIDE
     Indication: INTERVERTEBRAL DISC DEGENERATION
     Dosage: 60 MG, UNK
     Dates: start: 20090115, end: 20090404
  2. AMBIEN [Concomitant]
     Active Substance: ZOLPIDEM TARTRATE
     Indication: SLEEP DISORDER
  3. OXYCODONE [Concomitant]
     Active Substance: OXYCODONE
  4. SKELAXIN [Concomitant]
     Active Substance: METAXALONE

REACTIONS (8)
  - Diarrhoea [Not Recovered/Not Resolved]
  - Vomiting [Not Recovered/Not Resolved]
  - Vertigo [Not Recovered/Not Resolved]
  - Pain [Not Recovered/Not Resolved]
  - Photophobia [Not Recovered/Not Resolved]
  - Drug withdrawal syndrome [Not Recovered/Not Resolved]
  - Nausea [Not Recovered/Not Resolved]
  - Headache [Not Recovered/Not Resolved]

NARRATIVE: CASE EVENT DATE: 20090404
